APPROVED DRUG PRODUCT: LITHIUM CARBONATE
Active Ingredient: LITHIUM CARBONATE
Strength: 150MG
Dosage Form/Route: CAPSULE;ORAL
Application: A076243 | Product #002
Applicant: PHARMOBEDIENT CONSULTING LLC
Approved: Feb 24, 2003 | RLD: No | RS: No | Type: DISCN